FAERS Safety Report 8976506 (Version 2)
Quarter: 2012Q4

REPORT INFORMATION
  Report Type: 
  Country: JP (occurrence: JP)
  Receive Date: 20121220
  Receipt Date: 20121226
  Transmission Date: 20130627
  Serious: Yes (Other)
  Sender: FDA-Public Use
  Company Number: JP-JNJFOC-20121207508

PATIENT
  Age: 71 Year
  Sex: Female
  Weight: 44 kg

DRUGS (3)
  1. LEUSTATIN [Suspect]
     Indication: MANTLE CELL LYMPHOMA
     Route: 042
  2. RITUXIMAB [Suspect]
     Indication: MANTLE CELL LYMPHOMA
     Route: 065
  3. ANTINEOPLASTIC (UNSPECIFIED INGREDIENT) [Suspect]
     Indication: MANTLE CELL LYMPHOMA
     Route: 065

REACTIONS (14)
  - Bone marrow failure [Recovering/Resolving]
  - Cytomegalovirus infection [Recovering/Resolving]
  - Pyrexia [None]
  - Toothache [None]
  - Periodontitis [None]
  - Stomatitis necrotising [None]
  - Ischaemia [None]
  - Oral disorder [None]
  - Purulence [None]
  - Necrotising ulcerative gingivostomatitis [None]
  - Osteonecrosis [None]
  - Acinetobacter test positive [None]
  - Viral infection [None]
  - Pseudomonas test positive [None]
